FAERS Safety Report 10879564 (Version 5)
Quarter: 2015Q1

REPORT INFORMATION
  Report Type: Spontaneous
  Country: CN (occurrence: CN)
  Receive Date: 20150302
  Receipt Date: 20150316
  Transmission Date: 20150721
  Serious: Yes (Hospitalization, Other)
  Sender: FDA-Public Use
  Company Number: CN-009507513-1502CHN009008

PATIENT
  Sex: Male

DRUGS (3)
  1. TEMODAL [Suspect]
     Active Substance: TEMOZOLOMIDE
     Indication: ANAPLASTIC ASTROCYTOMA
     Dosage: 360 MG, QD, 60 MG (LOT# 147229201) WAS SAMPLE, 300 MG WAS SUPPLIED BY HOSPITAL
     Route: 048
     Dates: start: 20150123, end: 20150127
  2. TEMODAL [Suspect]
     Active Substance: TEMOZOLOMIDE
     Indication: GLIOBLASTOMA
     Dosage: 250 MG, QD
     Route: 048
     Dates: start: 201408
  3. VALPROATE SODIUM. [Suspect]
     Active Substance: VALPROATE SODIUM
     Dosage: STRENGTH, DOSE, ROUTE OF ADMINISTRATION, FREQUENCY ARE UNKNOWN
     Dates: end: 201409

REACTIONS (1)
  - Epilepsy [Recovered/Resolved]

NARRATIVE: CASE EVENT DATE: 20150124
